FAERS Safety Report 10283413 (Version 1)
Quarter: 2014Q3

REPORT INFORMATION
  Report Type: Spontaneous
  Country: US (occurrence: US)
  Receive Date: 20140708
  Receipt Date: 20140708
  Transmission Date: 20150326
  Serious: No
  Sender: FDA-Public Use
  Company Number: US-ASTRAZENECA-2014SE47099

PATIENT
  Sex: Female

DRUGS (8)
  1. RESTASIS [Concomitant]
     Active Substance: CYCLOSPORINE
  2. SOTOLOL [Concomitant]
     Active Substance: SOTALOL
     Indication: HEART RATE IRREGULAR
  3. CHERATUSSIN [Concomitant]
  4. ASPIRIN. [Concomitant]
     Active Substance: ASPIRIN
  5. DALIRESP [Concomitant]
     Active Substance: ROFLUMILAST
  6. SYMBICORT [Suspect]
     Active Substance: BUDESONIDE\FORMOTEROL FUMARATE DIHYDRATE
     Indication: LUNG OPERATION
     Dosage: UNKNOWN
     Route: 055
     Dates: start: 2010
  7. HYDROXYZINE [Concomitant]
     Active Substance: HYDROXYZINE\HYDROXYZINE HYDROCHLORIDE
  8. SPIRIVA [Concomitant]
     Active Substance: TIOTROPIUM BROMIDE MONOHYDRATE

REACTIONS (3)
  - Circumstance or information capable of leading to device use error [Unknown]
  - Intentional product misuse [Unknown]
  - Dysgeusia [Unknown]
